FAERS Safety Report 7212683-1 (Version None)
Quarter: 2011Q1

REPORT INFORMATION
  Report Type: 
  Country: None (occurrence: None)
  Receive Date: 20110106
  Receipt Date: 20101228
  Transmission Date: 20110831
  Serious: Yes (Death)
  Sender: FDA-Public Use
  Company Number: US-JNJFOC-20100304430

PATIENT
  Sex: Female
  Weight: 72.58 kg

DRUGS (18)
  1. NICOTINE [Concomitant]
     Route: 065
  2. LORAZEPAM [Concomitant]
     Route: 065
  3. PERCOCET [Concomitant]
     Route: 065
  4. SOMATROPIN [Concomitant]
     Route: 065
  5. SYNTHROID [Concomitant]
     Route: 065
  6. PREDNISONE [Concomitant]
     Route: 065
  7. NEXIUM [Concomitant]
     Route: 065
  8. EFFEXOR [Concomitant]
     Route: 065
  9. NASONEX [Concomitant]
     Route: 065
  10. CENTRUM SILVER [Concomitant]
     Route: 065
  11. DURAGESIC-50 [Suspect]
     Indication: PAIN
     Route: 062
  12. AMITRIPTYLINE HYDROCHLORIDE [Concomitant]
     Route: 065
  13. CLARITIN-D [Concomitant]
     Route: 065
  14. SERTRALINE [Concomitant]
     Route: 065
  15. NORTRIPTYLINE [Concomitant]
     Route: 065
  16. ZOCOR [Concomitant]
     Route: 065
  17. CITRACAL [Concomitant]
     Route: 065
  18. ERYTHROMYCIN ETHYLSUCCINATE [Concomitant]
     Route: 065

REACTIONS (3)
  - PRODUCT QUALITY ISSUE [None]
  - DRUG INEFFECTIVE [None]
  - DRUG ADMINISTERED AT INAPPROPRIATE SITE [None]
